FAERS Safety Report 6805100-4 (Version None)
Quarter: 2010Q2

REPORT INFORMATION
  Report Type: 
  Country: None (occurrence: None)
  Receive Date: 20100628
  Receipt Date: 20070830
  Transmission Date: 20101027
  Serious: Yes (Hospitalization)
  Sender: FDA-Public Use
  Company Number: US-PFIZER INC-2007072605

PATIENT
  Sex: Male
  Weight: 90.7 kg

DRUGS (7)
  1. SUTENT [Suspect]
     Indication: RENAL CELL CARCINOMA
     Dates: start: 20070301, end: 20070824
  2. DIOVANE [Concomitant]
  3. ATENOLOL [Concomitant]
  4. VITAMINS [Concomitant]
  5. TYLENOL PM [Concomitant]
  6. GLUCOSAMINE [Concomitant]
  7. CHONDROITIN [Concomitant]

REACTIONS (6)
  - ASTHENIA [None]
  - DEHYDRATION [None]
  - DIARRHOEA [None]
  - FATIGUE [None]
  - FULL BLOOD COUNT DECREASED [None]
  - VOMITING [None]
